FAERS Safety Report 6413106-2 (Version None)
Quarter: 2009Q4

REPORT INFORMATION
  Report Type: 
  Country: None (occurrence: None)
  Receive Date: 20091022
  Receipt Date: 20091022
  Transmission Date: 20100525
  Serious: Yes (Hospitalization)
  Sender: FDA-Public Use
  Company Number: None

PATIENT
  Age: 74 Year
  Sex: Male

DRUGS (4)
  1. SIMVASTATIN [Suspect]
     Indication: CARDIAC OPERATION
     Dosage: 80 MG PM PO
     Route: 048
     Dates: start: 19980901, end: 20081231
  2. SIMVASTATIN [Suspect]
     Indication: HYPERLIPIDAEMIA
     Dosage: 80 MG PM PO
     Route: 048
     Dates: start: 19980901, end: 20081231
  3. SIMVASTATIN [Suspect]
     Indication: HYPERTENSION
     Dosage: 80 MG PM PO
     Route: 048
     Dates: start: 19980901, end: 20081231
  4. DILTIAZEM [Suspect]
     Indication: ATRIAL FIBRILLATION
     Dosage: 30 MG BID PO
     Route: 048
     Dates: start: 20060301, end: 20081231

REACTIONS (2)
  - HEPATIC ENZYME INCREASED [None]
  - RHABDOMYOLYSIS [None]
